FAERS Safety Report 10143284 (Version 1)
Quarter: 2014Q2

REPORT INFORMATION
  Report Type: Spontaneous
  Country: US (occurrence: None)
  Receive Date: 20140429
  Receipt Date: 20140429
  Transmission Date: 20141212
  Serious: No
  Sender: FDA-Public Use
  Company Number: None

PATIENT
  Age: 65 Year
  Sex: Female

DRUGS (13)
  1. FORTEO [Suspect]
     Indication: SENILE OSTEOPOROSIS
     Route: 058
     Dates: start: 20131228
  2. THEOPHYLLINE [Concomitant]
  3. VERAPAMIL [Concomitant]
  4. PREVACID [Concomitant]
  5. LASIX [Concomitant]
  6. PREDNISONE [Concomitant]
  7. LYRICA [Concomitant]
  8. VIT D [Concomitant]
  9. VIT C [Concomitant]
  10. TUMS [Concomitant]
  11. ALLOPURINOL [Concomitant]
  12. AMITRIPTYLINE [Concomitant]
  13. COUMADIN [Concomitant]

REACTIONS (1)
  - Pneumonia [None]
